FAERS Safety Report 11591101 (Version 1)
Quarter: 2015Q4

REPORT INFORMATION
  Report Type: Report from Study
  Country: US (occurrence: US)
  Receive Date: 20151003
  Receipt Date: 20151003
  Transmission Date: 20160304
  Serious: Yes (Other)
  Sender: FDA-Public Use
  Company Number: US-AMGEN-USASL2015100515

PATIENT
  Age: 54 Year
  Sex: Male

DRUGS (1)
  1. ENBREL [Suspect]
     Active Substance: ETANERCEPT
     Indication: ANKYLOSING SPONDYLITIS
     Dosage: UNK
     Route: 065
     Dates: start: 20111101

REACTIONS (6)
  - Arthropod bite [Unknown]
  - Tibia fracture [Unknown]
  - Drug effect incomplete [Unknown]
  - Streptococcal infection [Unknown]
  - Localised infection [Unknown]
  - Accident [Unknown]

NARRATIVE: CASE EVENT DATE: 201202
